FAERS Safety Report 9525630 (Version 5)
Quarter: 2014Q2

REPORT INFORMATION
  Report Type: Report from Study
  Country: US (occurrence: US)
  Receive Date: 20130916
  Receipt Date: 20140602
  Transmission Date: 20141212
  Serious: Yes (Other)
  Sender: FDA-Public Use
  Company Number: US-SANOFI-AVENTIS-2013SA071043

PATIENT
  Age: 59 Year
  Sex: Female

DRUGS (2)
  1. AUBAGIO [Suspect]
     Indication: MULTIPLE SCLEROSIS
     Dosage: AUBAGIO FOR APPROXIMATELY 2 MONTHS
     Route: 048
     Dates: start: 20130516, end: 20130910
  2. AUBAGIO [Suspect]
     Indication: MULTIPLE SCLEROSIS
     Dosage: AUBAGIO FOR APPROXIMATELY 2 MONTHS
     Route: 048

REACTIONS (13)
  - Herpes zoster [Recovered/Resolved]
  - Pain [Unknown]
  - Erythema [Unknown]
  - Burning sensation [Unknown]
  - Epistaxis [Not Recovered/Not Resolved]
  - Peripheral swelling [Unknown]
  - Arthritis [Unknown]
  - Weight increased [Unknown]
  - Malaise [Unknown]
  - Rash [Recovering/Resolving]
  - Sinus disorder [Unknown]
  - Pruritus [Not Recovered/Not Resolved]
  - Hypoaesthesia [Unknown]
